FAERS Safety Report 13986798 (Version 3)
Quarter: 2017Q4

REPORT INFORMATION
  Report Type: Spontaneous
  Country: MX (occurrence: MX)
  Receive Date: 20170919
  Receipt Date: 20171106
  Transmission Date: 20180321
  Serious: Yes (Other)
  Sender: FDA-Public Use
  Company Number: MX-AMGEN-MEXSP2017139479

PATIENT
  Age: 16 Year
  Sex: Male

DRUGS (3)
  1. BLINCYTO [Suspect]
     Active Substance: BLINATUMOMAB
     Dosage: 28 MCG/M2, QD
     Route: 065
     Dates: end: 20170920
  2. BLINCYTO [Suspect]
     Active Substance: BLINATUMOMAB
     Indication: PRODUCT USED FOR UNKNOWN INDICATION
     Dosage: 9 MCG/M2, QD
     Route: 065
     Dates: start: 20170826
  3. PARACETAMOL [Concomitant]
     Active Substance: ACETAMINOPHEN

REACTIONS (4)
  - Eosinophilia [Recovered/Resolved]
  - Bone marrow failure [Recovering/Resolving]
  - Headache [Unknown]
  - Pyrexia [Unknown]

NARRATIVE: CASE EVENT DATE: 2017
